FAERS Safety Report 25686129 (Version 1)
Quarter: 2025Q3

REPORT INFORMATION
  Report Type: Spontaneous
  Country: US (occurrence: US)
  Receive Date: 20250815
  Receipt Date: 20250815
  Transmission Date: 20251021
  Serious: Yes (Hospitalization)
  Sender: BAYER HEALTHCARE LLC
  Company Number: US-BAYER-2025A104784

PATIENT
  Sex: Male

DRUGS (12)
  1. ASPIRIN [Suspect]
     Active Substance: ASPIRIN
  2. TAMSULOSIN HYDROCHLORIDE [Concomitant]
     Active Substance: TAMSULOSIN HYDROCHLORIDE
  3. VITAMIN D3 [Concomitant]
     Active Substance: CHOLECALCIFEROL
  4. FLUOXETINE HYDROCHLORIDE [Concomitant]
     Active Substance: FLUOXETINE HYDROCHLORIDE
  5. CYANOCOBALAMIN\DEXPANTHENOL\NIACINAMIDE\PYRIDOXINE HYDROCHLORIDE\RIBOF [Concomitant]
     Active Substance: CYANOCOBALAMIN\DEXPANTHENOL\NIACINAMIDE\PYRIDOXINE HYDROCHLORIDE\RIBOFLAVIN 5^-PHOSPHATE SODIUM\THIA
  6. ZINC [Concomitant]
     Active Substance: ZINC
  7. ATORVASTATIN [Concomitant]
     Active Substance: ATORVASTATIN
  8. FISH OIL [Suspect]
     Active Substance: FISH OIL
  9. VITAMIN A [Concomitant]
     Active Substance: VITAMIN A
  10. VYNDAMAX [Concomitant]
     Active Substance: TAFAMIDIS
  11. VITAMINS [Suspect]
     Active Substance: VITAMINS
  12. ELIQUIS [Suspect]
     Active Substance: APIXABAN

REACTIONS (1)
  - Thrombosis [Not Recovered/Not Resolved]

NARRATIVE: CASE EVENT DATE: 20240331
